FAERS Safety Report 8616921-X (Version None)
Quarter: 2012Q3

REPORT INFORMATION
  Report Type: 
  Country: None (occurrence: None)
  Receive Date: 20120823
  Receipt Date: 20120810
  Transmission Date: 20120928
  Serious: No
  Sender: FDA-Public Use
  Company Number: US-009507513-1205USA02943

PATIENT

DRUGS (2)
  1. METICORTEN [Concomitant]
  2. JANUVIA [Suspect]
     Indication: DIABETES MELLITUS
     Dosage: 100 MG, QD
     Route: 048
     Dates: start: 20120425

REACTIONS (3)
  - ALOPECIA [None]
  - RASH MACULAR [None]
  - DYSGEUSIA [None]
